FAERS Safety Report 7632253-0 (Version None)
Quarter: 2011Q3

REPORT INFORMATION
  Report Type: 
  Country: None (occurrence: None)
  Receive Date: 20110725
  Receipt Date: 20100708
  Transmission Date: 20111222
  Serious: No
  Sender: FDA-Public Use
  Company Number: US-BRISTOL-MYERS SQUIBB COMPANY-15182470

PATIENT
  Age: 82 Year
  Sex: Male

DRUGS (4)
  1. ZOCOR [Suspect]
  2. ENOXAPARIN SODIUM [Suspect]
  3. ASPIRIN [Suspect]
  4. COUMADIN [Suspect]
     Dosage: 7.5MG THEN 10MG.

REACTIONS (1)
  - INTERNATIONAL NORMALISED RATIO ABNORMAL [None]
